FAERS Safety Report 7247492-0 (Version None)
Quarter: 2011Q1

REPORT INFORMATION
  Report Type: 
  Country: None (occurrence: None)
  Receive Date: 20110127
  Receipt Date: 20110117
  Transmission Date: 20110831
  Serious: Yes (Life-Threatening, Hospitalization, Other)
  Sender: FDA-Public Use
  Company Number: FR-BRISTOL-MYERS SQUIBB COMPANY-15500150

PATIENT
  Age: 66 Year
  Sex: Male

DRUGS (8)
  1. TAMSULOSIN HCL [Concomitant]
     Dosage: JOSIR 0.4
  2. LOXEN [Concomitant]
     Dosage: LOXEN 50
  3. COZAAR [Concomitant]
     Dosage: COZAAR 50
     Route: 048
  4. ESIDRIX [Concomitant]
     Dosage: ESIDREX 25
  5. GLUCOPHAGE [Suspect]
     Dosage: SEVERAL YRS-25DEC10
     Route: 048
  6. LANZOR [Concomitant]
     Dosage: LANZOR 30
  7. TRIMEPRAZINE TARTRATE [Concomitant]
  8. TOPALGIC [Concomitant]
     Dosage: TOPALGIC 50

REACTIONS (4)
  - VOMITING [None]
  - HYPERKALAEMIA [None]
  - RENAL FAILURE [None]
  - LACTIC ACIDOSIS [None]
